FAERS Safety Report 9686105 (Version 1)
Quarter: 2013Q4

REPORT INFORMATION
  Report Type: Spontaneous
  Country: DE (occurrence: GB)
  Receive Date: 20131113
  Receipt Date: 20131113
  Transmission Date: 20140711
  Serious: Yes (Disabling)
  Sender: FDA-Public Use
  Company Number: GB-FRI-1000051047

PATIENT
  Age: 87 Year
  Sex: Male

DRUGS (7)
  1. MEMANTINE [Suspect]
     Indication: DEMENTIA ALZHEIMER^S TYPE
     Dosage: 20 MG
     Route: 048
     Dates: start: 20130727, end: 20131004
  2. MEMANTINE [Suspect]
     Dosage: 10 MG
     Route: 048
  3. ASPIRIN [Concomitant]
     Indication: HYPERTENSION
     Dosage: 75 MG
     Route: 048
  4. CO-CODAMOL [Concomitant]
     Indication: PAIN
     Route: 048
  5. PROPRANOLOL [Concomitant]
     Indication: HYPERTENSION
     Dosage: 4 MG
     Route: 048
  6. RAMIPRIL [Concomitant]
     Indication: HYPERTENSION
     Dosage: 5 MG
     Route: 048
  7. SIMVASTATIN [Concomitant]
     Indication: HYPERLIPIDAEMIA
     Dosage: 10 MG
     Route: 048

REACTIONS (4)
  - Essential tremor [Recovering/Resolving]
  - Sensory disturbance [Recovering/Resolving]
  - Constipation [Recovering/Resolving]
  - Condition aggravated [Recovering/Resolving]
